FAERS Safety Report 5751522-2 (Version None)
Quarter: 2008Q2

REPORT INFORMATION
  Report Type: 
  Country: None (occurrence: None)
  Receive Date: 20080528
  Receipt Date: 20080515
  Transmission Date: 20081010
  Serious: Yes (Disabling)
  Sender: FDA-Public Use
  Company Number: PHHO2008HU03270

PATIENT
  Sex: Female
  Weight: 56 kg

DRUGS (1)
  1. AMN107 AMN+CAP [Suspect]
     Indication: CHRONIC MYELOID LEUKAEMIA
     Dosage: 800 MG, BID
     Route: 048
     Dates: start: 20080220, end: 20080227

REACTIONS (5)
  - ANOREXIA [None]
  - PAIN [None]
  - PERIANAL ABSCESS [None]
  - PYREXIA [None]
  - TREMOR [None]
